FAERS Safety Report 8243808-7 (Version None)
Quarter: 2012Q1

REPORT INFORMATION
  Report Type: 
  Country: None (occurrence: None)
  Receive Date: 20120329
  Receipt Date: 20120106
  Transmission Date: 20120608
  Serious: No
  Sender: FDA-Public Use
  Company Number: US-MYLANLABS-2012S1000541

PATIENT
  Age: 46 Year
  Sex: Female
  Weight: 52.16 kg

DRUGS (8)
  1. EMSAM [Suspect]
     Indication: MAJOR DEPRESSION
     Dates: start: 20121201
  2. KLONOPIN [Concomitant]
     Indication: INSOMNIA
  3. DEPO-PROVERA [Concomitant]
     Indication: CONTRACEPTION
  4. XANAX [Concomitant]
  5. EMSAM [Suspect]
     Indication: POST-TRAUMATIC STRESS DISORDER
     Dates: start: 20121201
  6. XANAX [Concomitant]
  7. EMSAM [Suspect]
     Indication: AGORAPHOBIA
     Dates: start: 20121201
  8. XANAX [Concomitant]
     Indication: PANIC ATTACK

REACTIONS (2)
  - PALPITATIONS [None]
  - BLOOD PRESSURE INCREASED [None]
